FAERS Safety Report 20995664 (Version 1)
Quarter: 2022Q2

REPORT INFORMATION
  Report Type: Spontaneous
  Country: US (occurrence: US)
  Receive Date: 20220623
  Receipt Date: 20220623
  Transmission Date: 20220721
  Serious: No
  Sender: FDA-Public Use
  Company Number: US-PURDUE PHARMA-USA-2022-0291071

PATIENT
  Age: 72 Year
  Sex: Female

DRUGS (8)
  1. OXYCODONE HYDROCHLORIDE [Suspect]
     Active Substance: OXYCODONE HYDROCHLORIDE
     Indication: Product used for unknown indication
     Dosage: 20 MG, TID DAILY
     Route: 048
     Dates: start: 20220126
  2. LISINOPRIL [Concomitant]
     Active Substance: LISINOPRIL
     Indication: Hypertension
     Dosage: IN MORNING
     Route: 048
  3. ZOLOFT [Concomitant]
     Active Substance: SERTRALINE HYDROCHLORIDE
     Indication: Crying
     Dosage: 100 MG, DAILY, ONCE DAILY -SELF TITRATES
     Route: 048
     Dates: start: 2000
  4. ZOLOFT [Concomitant]
     Active Substance: SERTRALINE HYDROCHLORIDE
     Indication: Depression
  5. PROTONIX [Concomitant]
     Active Substance: PANTOPRAZOLE SODIUM
     Indication: Reflux gastritis
     Dosage: UNK, DAILY
     Route: 048
  6. ADVAIR HFA [Concomitant]
     Active Substance: FLUTICASONE PROPIONATE\SALMETEROL XINAFOATE
     Indication: Asthma
     Dosage: UNK, BID, TWICE DAILY, INHALER,POWDER,ORAL
     Route: 048
     Dates: start: 2007
  7. LEVALBUTEROL [Concomitant]
     Active Substance: LEVALBUTEROL
     Indication: Asthma
     Dosage: 1 PLUS PUFF WHATEVER SHE WANTS, MOUTH, INHALATION
     Route: 048
  8. CORTISONE                          /00014602/ [Concomitant]
     Indication: Rash
     Dosage: APPLY TO RASH,AFFECTED AREAS
     Route: 061

REACTIONS (1)
  - Nausea [Unknown]

NARRATIVE: CASE EVENT DATE: 20220126
